FAERS Safety Report 5974561-5 (Version None)
Quarter: 2008Q4

REPORT INFORMATION
  Report Type: 
  Country: None (occurrence: None)
  Receive Date: 20081201
  Receipt Date: 20081125
  Transmission Date: 20090506
  Serious: Yes (Hospitalization, Other)
  Sender: FDA-Public Use
  Company Number: US-PFIZER INC-2008099868

PATIENT
  Sex: Female

DRUGS (5)
  1. XANAX [Suspect]
     Indication: INSOMNIA
     Dosage: TEXT:1 DF-FREQ:ONCE
     Route: 048
     Dates: start: 20081113, end: 20081113
  2. IBUPROFEN TABLETS [Suspect]
     Dosage: TEXT:1 DF-FREQ:ONCE
     Route: 048
     Dates: start: 20081113, end: 20081113
  3. MAALOX [Suspect]
     Indication: GASTROOESOPHAGEAL REFLUX DISEASE
     Dosage: TEXT:8 TSP-FREQ:PER DAY
     Route: 048
     Dates: start: 20081112, end: 20081113
  4. OMEPRAZOLE [Suspect]
     Indication: GASTROOESOPHAGEAL REFLUX DISEASE
     Dosage: TEXT:1 DF-FREQ:PER DAY
     Route: 048
     Dates: start: 20081112, end: 20081113
  5. ORAL CONTRACEPTIVE NOS [Concomitant]

REACTIONS (4)
  - BLOOD BILIRUBIN INCREASED [None]
  - HEPATITIS B [None]
  - IMPAIRED WORK ABILITY [None]
  - SCLERAL DISCOLOURATION [None]
